FAERS Safety Report 9907499 (Version 1)
Quarter: 2014Q1

REPORT INFORMATION
  Report Type: Spontaneous
  Country: US (occurrence: US)
  Receive Date: 20140218
  Receipt Date: 20140218
  Transmission Date: 20141002
  Serious: Yes (Hospitalization)
  Sender: FDA-Public Use
  Company Number: US-BAXTER-2014BAX007484

PATIENT
  Sex: Male

DRUGS (1)
  1. DIANEAL LOW CALCIUM [Suspect]
     Indication: PERITONEAL DIALYSIS
     Route: 033
     Dates: start: 201311

REACTIONS (7)
  - Herpes zoster [Recovered/Resolved]
  - Gout [Recovered/Resolved]
  - Blood pressure orthostatic abnormal [Recovering/Resolving]
  - Rhabdomyolysis [Recovering/Resolving]
  - Decubitus ulcer [Recovering/Resolving]
  - Hypovolaemia [Recovering/Resolving]
  - Hypotension [Recovered/Resolved]
